FAERS Safety Report 10120976 (Version 2)
Quarter: 2014Q2

REPORT INFORMATION
  Report Type: Spontaneous
  Country: US (occurrence: US)
  Receive Date: 20140425
  Receipt Date: 20140602
  Transmission Date: 20141212
  Serious: Yes (Other)
  Sender: FDA-Public Use
  Company Number: US-GLAXOSMITHKLINE-A1070695A

PATIENT
  Sex: Female
  Weight: 77.3 kg

DRUGS (5)
  1. LAMICTAL [Suspect]
     Indication: CONVULSION
     Dosage: 200MG PER DAY
     Route: 048
  2. FOLIC ACID [Concomitant]
  3. MERCAPTOPURINE [Concomitant]
  4. ORTHO-TRI-CYCLEN [Concomitant]
  5. EFFEXOR [Concomitant]

REACTIONS (3)
  - Generalised tonic-clonic seizure [Unknown]
  - Partial seizures [Unknown]
  - Drug dose omission [Unknown]
